FAERS Safety Report 4462512-4 (Version None)
Quarter: 2004Q3

REPORT INFORMATION
  Report Type: 
  Country: None (occurrence: None)
  Receive Date: 20040924
  Receipt Date: 20040909
  Transmission Date: 20050211
  Serious: Yes (Death, Hospitalization)
  Sender: FDA-Public Use
  Company Number: 2004GB02133

PATIENT
  Age: 82 Year
  Sex: Female

DRUGS (15)
  1. ARIMIDEX [Suspect]
     Indication: BREAST CANCER
     Dosage: 1 MG QD PO
     Route: 048
     Dates: start: 20040510
  2. IRESSA [Suspect]
     Indication: BREAST CANCER
     Dosage: 250 MG QD PO
     Route: 048
     Dates: start: 20040524
  3. ZD1839 PLACEBO [Suspect]
     Indication: BREAST CANCER
     Dates: start: 20040510, end: 20040523
  4. THYROXINE [Concomitant]
  5. LACTULOSE [Concomitant]
  6. ASPIRIN [Concomitant]
  7. AMIODARONE [Concomitant]
  8. PERINDOPRIL [Concomitant]
  9. LEVOBUNOLOL HCL [Concomitant]
  10. CO-CODAMOL [Concomitant]
  11. ISMO [Concomitant]
  12. HYPROMELLOSE [Concomitant]
  13. DOXAZOSIN [Concomitant]
  14. FELBINAC [Concomitant]
  15. VISCOTEARS [Concomitant]

REACTIONS (6)
  - ABDOMINAL PAIN [None]
  - APHAGIA [None]
  - DEEP VEIN THROMBOSIS [None]
  - DIARRHOEA [None]
  - LYMPHADENOPATHY [None]
  - PULMONARY EMBOLISM [None]
